FAERS Safety Report 17980385 (Version 3)
Quarter: 2020Q3

REPORT INFORMATION
  Report Type: Spontaneous
  Country: US (occurrence: US)
  Receive Date: 20200703
  Receipt Date: 20200811
  Transmission Date: 20201103
  Serious: Yes (Hospitalization, Other)
  Sender: FDA-Public Use
  Company Number: US-AMGEN-USASP2020103533

PATIENT
  Age: 20 Year
  Sex: Male

DRUGS (1)
  1. BLINCYTO [Suspect]
     Active Substance: BLINATUMOMAB
     Indication: LEUKAEMIA
     Dosage: UNK
     Route: 065

REACTIONS (6)
  - Application site pain [Unknown]
  - Epistaxis [Unknown]
  - Device dislocation [Unknown]
  - Unevaluable event [Unknown]
  - Nausea [Unknown]
  - Nasal injury [Unknown]
